FAERS Safety Report 9683938 (Version 1)
Quarter: 2013Q4

REPORT INFORMATION
  Report Type: Spontaneous
  Country: US (occurrence: US)
  Receive Date: 20131112
  Receipt Date: 20131112
  Transmission Date: 20140711
  Serious: No
  Sender: FDA-Public Use
  Company Number: US-MALLINCKRODT-T201304491

PATIENT
  Age: 84 Year
  Sex: Female

DRUGS (7)
  1. FENTANYL TRANSDERMAL SYSTEM [Suspect]
     Indication: SPINAL PAIN
     Dosage: 25 UG/HR, 1 PATCH Q72H
     Route: 062
  2. OMEPRAZOLE [Concomitant]
     Indication: PRODUCT USED FOR UNKNOWN INDICATION
     Dosage: 20 MG, QD
     Route: 048
  3. SIMVASTIN [Concomitant]
     Indication: BLOOD CHOLESTEROL
     Dosage: 40 MG Q HS
     Route: 048
  4. METOPROLOL [Concomitant]
     Indication: PRODUCT USED FOR UNKNOWN INDICATION
     Dosage: 50 MG, BID
     Route: 048
  5. OXYBUTIN [Concomitant]
     Indication: PRODUCT USED FOR UNKNOWN INDICATION
     Dosage: 5 MG, TID
     Route: 048
  6. SULFASALAZINE [Concomitant]
     Indication: CROHN^S DISEASE
     Dosage: 500 MG, QD
     Route: 048
  7. NITROSTAT [Concomitant]
     Indication: ANGINA PECTORIS
     Dosage: .4 UNK, PRN
     Route: 048

REACTIONS (1)
  - Inappropriate schedule of drug administration [Recovered/Resolved]
